FAERS Safety Report 6268493-5 (Version None)
Quarter: 2009Q3

REPORT INFORMATION
  Report Type: 
  Country: None (occurrence: None)
  Receive Date: 20090713
  Receipt Date: 20090713
  Transmission Date: 20100115
  Serious: Yes (Other)
  Sender: FDA-Public Use
  Company Number: None

PATIENT
  Age: 44 Year
  Sex: Female
  Weight: 68.4932 kg

DRUGS (5)
  1. VERAMYST [Suspect]
     Indication: RHINITIS ALLERGIC
     Dosage: 1 PUFF EACH NOSTRIL ONCE PER DAY NASAL
     Route: 045
     Dates: start: 20090201, end: 20090501
  2. VERAMYST [Suspect]
     Indication: SINUSITIS
     Dosage: 1 PUFF EACH NOSTRIL ONCE PER DAY NASAL
     Route: 045
     Dates: start: 20090201, end: 20090501
  3. FLUOXETINE HCL [Concomitant]
  4. SEASONIQUE [Concomitant]
  5. LORATADINE [Concomitant]

REACTIONS (1)
  - ANOSMIA [None]
